FAERS Safety Report 8805826 (Version 1)
Quarter: 2012Q4

REPORT INFORMATION
  Report Type: Spontaneous
  Country: US (occurrence: None)
  Receive Date: 20120919
  Receipt Date: 20120919
  Transmission Date: 20130627
  Serious: Yes (Hospitalization)
  Sender: FDA-Public Use
  Company Number: None

PATIENT
  Age: 75 Year
  Sex: Female
  Weight: 74.84 kg

DRUGS (2)
  1. NITROFURANTOIN [Suspect]
     Indication: UTI
     Dates: start: 20120614, end: 20120619
  2. NITROFURANTOIN [Suspect]
     Indication: UTI
     Dates: start: 20120830, end: 20120903

REACTIONS (5)
  - Pyrexia [None]
  - Chills [None]
  - Asthenia [None]
  - Pneumonia [None]
  - Inflammation [None]
